FAERS Safety Report 10200717 (Version 1)
Quarter: 2014Q2

REPORT INFORMATION
  Report Type: Spontaneous
  Country: FR (occurrence: FR)
  Receive Date: 20140528
  Receipt Date: 20140528
  Transmission Date: 20141212
  Serious: Yes (Other)
  Sender: FDA-Public Use
  Company Number: FR-BRISTOL-MYERS SQUIBB COMPANY-20802435

PATIENT
  Age: 37 Year
  Sex: Female

DRUGS (1)
  1. ABILIFY [Suspect]
     Indication: ACUTE PSYCHOSIS
     Route: 048
     Dates: start: 20140301, end: 20140318

REACTIONS (6)
  - Anxiety [Recovering/Resolving]
  - Restlessness [Recovered/Resolved]
  - Insomnia [Recovered/Resolved]
  - Condition aggravated [Recovered/Resolved]
  - Sexually inappropriate behaviour [Unknown]
  - Off label use [Unknown]
